FAERS Safety Report 10214656 (Version 2)
Quarter: 2014Q2

REPORT INFORMATION
  Report Type: Report from Study
  Country: CO (occurrence: CO)
  Receive Date: 20140603
  Receipt Date: 20140603
  Transmission Date: 20141212
  Serious: Yes (Death, Hospitalization)
  Sender: FDA-Public Use
  Company Number: CO-BRISTOL-MYERS SQUIBB COMPANY-20694246

PATIENT
  Age: 47 Year
  Sex: Male

DRUGS (1)
  1. SPRYCEL [Suspect]
     Indication: CHRONIC MYELOID LEUKAEMIA
     Dosage: 1 TAB
     Route: 048
     Dates: start: 20140210

REACTIONS (4)
  - Renal failure [Fatal]
  - Cardio-respiratory arrest [Fatal]
  - Cellulitis [Recovering/Resolving]
  - Cough [Recovering/Resolving]
